FAERS Safety Report 7423178-4 (Version None)
Quarter: 2011Q2

REPORT INFORMATION
  Report Type: 
  Country: None (occurrence: None)
  Receive Date: 20110413
  Receipt Date: 20110413
  Transmission Date: 20111010
  Serious: No
  Sender: FDA-Public Use
  Company Number: None

PATIENT
  Age: 65 Year
  Sex: Male
  Weight: 63.05 kg

DRUGS (1)
  1. DRONEDARONE HCL [Suspect]
     Indication: ATRIAL FIBRILLATION
     Dosage: 400 MG BID PO
     Route: 048
     Dates: start: 20100302, end: 20100318

REACTIONS (6)
  - DIARRHOEA [None]
  - NAUSEA [None]
  - PALPITATIONS [None]
  - VOMITING [None]
  - ABDOMINAL DISCOMFORT [None]
  - TREATMENT FAILURE [None]
